FAERS Safety Report 5663633-0 (Version None)
Quarter: 2008Q1

REPORT INFORMATION
  Report Type: 
  Country: None (occurrence: None)
  Receive Date: 20080307
  Receipt Date: 20080221
  Transmission Date: 20080703
  Serious: Yes (Hospitalization)
  Sender: FDA-Public Use
  Company Number: GB-1165375

PATIENT
  Age: 63 Year
  Sex: Female

DRUGS (4)
  1. MAXIDEX OPHTHALMIC (DEXAMETHASONE) 0.1% SUSPENSION EYE DROPS, SUSPENSI [Suspect]
     Dosage: 2/1 DAYS
     Route: 047
     Dates: start: 20071001
  2. ATENOLOL [Concomitant]
  3. AZATHIOPRINE [Concomitant]
  4. RAPAMUNE [Concomitant]

REACTIONS (5)
  - DIARRHOEA [None]
  - DRUG RASH WITH EOSINOPHILIA AND SYSTEMIC SYMPTOMS [None]
  - RENAL FAILURE ACUTE [None]
  - RHABDOMYOLYSIS [None]
  - VOMITING [None]
